FAERS Safety Report 10182844 (Version 1)
Quarter: 2014Q2

REPORT INFORMATION
  Report Type: Spontaneous
  Country: US (occurrence: US)
  Receive Date: 20140520
  Receipt Date: 20140520
  Transmission Date: 20141212
  Serious: No
  Sender: FDA-Public Use
  Company Number: US-HORIZON-PRE-0038-2014

PATIENT
  Age: 29 Year
  Sex: Male

DRUGS (1)
  1. PREDNISONE [Suspect]
     Indication: TAKAYASU^S ARTERITIS
     Dosage: GRADUALLY DECREASED TO 20MG/DAY

REACTIONS (2)
  - Anxiety [Unknown]
  - Tremor [Unknown]
